FAERS Safety Report 23350933 (Version 1)
Quarter: 2023Q4

REPORT INFORMATION
  Report Type: Spontaneous
  Country: EG (occurrence: EG)
  Receive Date: 20231229
  Receipt Date: 20231229
  Transmission Date: 20240110
  Serious: Yes (Life-Threatening, Disabling, Other)
  Sender: FDA-Public Use
  Company Number: EG-HIKMA PHARMACEUTICALS-EG-H14001-23-68456

PATIENT
  Age: 40 Year
  Sex: Male
  Weight: 85 kg

DRUGS (5)
  1. DOXORUBICIN HYDROCHLORIDE [Suspect]
     Active Substance: DOXORUBICIN HYDROCHLORIDE
     Indication: Non-Hodgkin^s lymphoma
     Dosage: 108 MILLIGRAM, 3W, DAY 4
     Route: 041
     Dates: start: 20231111
  2. DEXAMETHASONE [Suspect]
     Active Substance: DEXAMETHASONE
     Indication: Non-Hodgkin^s lymphoma
     Dosage: 40 MILLIGRAM, 3W, DAY 1- 4, 11-14
     Route: 041
     Dates: start: 20231111
  3. CYCLOPHOSPHAMIDE [Suspect]
     Active Substance: CYCLOPHOSPHAMIDE
     Indication: Non-Hodgkin^s lymphoma
     Dosage: 1 GRAM, 3W, DAY 4
     Route: 041
     Dates: start: 20231111
  4. MESNA [Suspect]
     Active Substance: MESNA
     Indication: Non-Hodgkin^s lymphoma
     Dosage: 1080 MILLIGRAM, 3W, DAY 1-3
     Route: 041
     Dates: start: 20231111
  5. VINCRISTINE SULFATE [Suspect]
     Active Substance: VINCRISTINE SULFATE
     Indication: Non-Hodgkin^s lymphoma
     Dosage: 2 MILLIGRAM, 3W, DAY 4, 11
     Route: 041
     Dates: start: 20231111

REACTIONS (6)
  - Deep vein thrombosis [Unknown]
  - Venous occlusion [Unknown]
  - Oedema peripheral [Unknown]
  - Alanine aminotransferase increased [Unknown]
  - Skin ulcer [Unknown]
  - Disability [Unknown]

NARRATIVE: CASE EVENT DATE: 20231111
